FAERS Safety Report 9820416 (Version 1)
Quarter: 2013Q4

REPORT INFORMATION
  Report Type: Spontaneous
  Country: US (occurrence: None)
  Receive Date: 20131028
  Receipt Date: 20131028
  Transmission Date: 20140711
  Serious: Yes (Death)
  Sender: FDA-Public Use
  Company Number: SYM-2013-00277

PATIENT
  Age: 50 Year
  Sex: Female

DRUGS (4)
  1. BUPROPION [Suspect]
     Route: 048
  2. ETHANOL [Suspect]
     Route: 048
  3. ALPRAZOLAM [Suspect]
     Route: 048
  4. ACETAMINOPHEN/OXYCODONE [Suspect]

REACTIONS (1)
  - Completed suicide [None]
